FAERS Safety Report 8435690-X (Version None)
Quarter: 2012Q2

REPORT INFORMATION
  Report Type: 
  Country: None (occurrence: None)
  Receive Date: 20120614
  Receipt Date: 20120606
  Transmission Date: 20120825
  Serious: Yes (Other)
  Sender: FDA-Public Use
  Company Number: US-MUTUAL PHARMACEUTICAL COMPANY, INC.-CLCY20120078

PATIENT
  Sex: Male
  Weight: 77.18 kg

DRUGS (4)
  1. COLCRYS [Suspect]
     Route: 048
     Dates: start: 20120401
  2. ULORIC [Suspect]
     Indication: GOUT
     Route: 048
     Dates: start: 20120301
  3. COLCRYS [Suspect]
     Indication: GOUT
     Route: 048
     Dates: start: 20120301, end: 20120401
  4. ALLOPURINOL [Concomitant]
     Indication: GOUT
     Route: 048
     Dates: start: 20110101, end: 20120320

REACTIONS (3)
  - PROSTATIC SPECIFIC ANTIGEN INCREASED [None]
  - PROSTATE CANCER [None]
  - DRUG INEFFECTIVE [None]
